FAERS Safety Report 5446008-9 (Version None)
Quarter: 2007Q3

REPORT INFORMATION
  Report Type: 
  Country: None (occurrence: None)
  Receive Date: 20070907
  Receipt Date: 20070830
  Transmission Date: 20080115
  Serious: Yes (Other)
  Sender: FDA-Public Use
  Company Number: US-ASTRAZENECA-2007UW20702

PATIENT
  Age: 54 Year
  Sex: Female
  Weight: 73.5 kg

DRUGS (3)
  1. TOPROL-XL [Suspect]
     Indication: HEART RATE INCREASED
     Route: 048
  2. OXYCONTIN [Suspect]
  3. XANAX [Concomitant]

REACTIONS (5)
  - CHEST PAIN [None]
  - DRUG ABUSER [None]
  - LOSS OF CONSCIOUSNESS [None]
  - NAUSEA [None]
  - SOMNOLENCE [None]
